FAERS Safety Report 11629336 (Version 1)
Quarter: 2015Q4

REPORT INFORMATION
  Report Type: Spontaneous
  Country: US (occurrence: None)
  Receive Date: 20151013
  Receipt Date: 20151013
  Transmission Date: 20160304
  Serious: No
  Sender: FDA-Public Use
  Company Number: None

PATIENT
  Age: 52 Year
  Sex: Female
  Weight: 77.11 kg

DRUGS (4)
  1. PROAIR HFA [Suspect]
     Active Substance: ALBUTEROL SULFATE
     Route: 055
  2. ZENCHANT [Concomitant]
  3. CLONAZEPAM. [Concomitant]
     Active Substance: CLONAZEPAM
  4. OXYCODONE [Concomitant]
     Active Substance: OXYCODONE

REACTIONS (3)
  - Drug ineffective [None]
  - Product packaging quantity issue [None]
  - Device malfunction [None]

NARRATIVE: CASE EVENT DATE: 20151008
